FAERS Safety Report 10980274 (Version 3)
Quarter: 2015Q2

REPORT INFORMATION
  Report Type: Spontaneous
  Country: FR (occurrence: FR)
  Receive Date: 20150402
  Receipt Date: 20150529
  Transmission Date: 20150821
  Serious: Yes (Death, Other)
  Sender: FDA-Public Use
  Company Number: FR-GILEAD-2015-0145101

PATIENT
  Age: 61 Year
  Sex: Male
  Weight: 90 kg

DRUGS (18)
  1. ZYDELIG [Suspect]
     Active Substance: IDELALISIB
     Dosage: 150 MG, BID
     Route: 048
     Dates: start: 20150225, end: 20150326
  2. VERSATIS [Concomitant]
     Active Substance: LIDOCAINE
     Dosage: 5 %, UNK
     Route: 065
  3. MABTHERA [Suspect]
     Active Substance: RITUXIMAB
     Dosage: 700 MG, Q1MONTH
     Route: 042
     Dates: start: 20150114, end: 20150114
  4. MABTHERA [Suspect]
     Active Substance: RITUXIMAB
     Dosage: 700 MG, Q1MONTH
     Route: 042
     Dates: start: 20150311, end: 20150311
  5. MABTHERA [Suspect]
     Active Substance: RITUXIMAB
     Indication: NON-HODGKIN^S LYMPHOMA
     Dosage: 355 MG/M2, Q1MONTH
     Route: 042
     Dates: start: 20141217, end: 20150311
  6. SPASFON                            /00934601/ [Concomitant]
     Route: 065
  7. VALACYCLOVIR [Concomitant]
     Active Substance: VALACYCLOVIR HYDROCHLORIDE
     Route: 065
  8. LYRICA [Concomitant]
     Active Substance: PREGABALIN
     Route: 065
  9. CORTANCYL [Suspect]
     Active Substance: PREDNISONE
     Indication: NON-HODGKIN^S LYMPHOMA
     Dosage: 20 MG, QD
     Route: 048
     Dates: start: 20141208, end: 20150329
  10. MABTHERA [Suspect]
     Active Substance: RITUXIMAB
     Dosage: 700 MG, Q1MONTH
     Route: 042
     Dates: start: 20141217, end: 20141217
  11. TEMERIT [Concomitant]
     Active Substance: NEBIVOLOL
     Route: 065
  12. IMOVANE [Concomitant]
     Active Substance: ZOPICLONE
     Dosage: 3.75 MG, UNK
     Route: 065
  13. SERESTA [Concomitant]
     Active Substance: OXAZEPAM
     Dosage: 10 MG, UNK
     Route: 065
  14. DAFALGAN [Concomitant]
     Active Substance: ACETAMINOPHEN
     Route: 065
  15. ZYDELIG [Suspect]
     Active Substance: IDELALISIB
     Indication: NON-HODGKIN^S LYMPHOMA
     Dosage: 150 MG, BID
     Route: 048
     Dates: start: 20141217, end: 20150209
  16. ZYLORIC [Concomitant]
     Active Substance: ALLOPURINOL
     Route: 065
  17. BISOCE [Concomitant]
     Active Substance: BISOPROLOL
     Dosage: 1.25 MG, UNK
     Route: 065
  18. COVERSYL                           /00790702/ [Concomitant]
     Active Substance: PERINDOPRIL
     Dosage: 5 MG, UNK
     Route: 065

REACTIONS (4)
  - Respiratory moniliasis [Fatal]
  - Acute respiratory distress syndrome [Fatal]
  - Herpes zoster [Recovering/Resolving]
  - Pneumocystis jirovecii pneumonia [Fatal]

NARRATIVE: CASE EVENT DATE: 20150209
